FAERS Safety Report 9044887 (Version 2)
Quarter: 2013Q1

REPORT INFORMATION
  Report Type: Report from Study
  Country: DE (occurrence: DE)
  Receive Date: 20130130
  Receipt Date: 20130206
  Transmission Date: 20140127
  Serious: Yes (Hospitalization)
  Sender: FDA-Public Use
  Company Number: DE-GLAXOSMITHKLINE-B0827533B

PATIENT
  Age: 71 None
  Sex: Female
  Weight: 76 kg

DRUGS (4)
  1. LAPATINIB [Suspect]
     Indication: BREAST CANCER
     Dosage: 750MG PER DAY
     Route: 048
     Dates: start: 20120809, end: 20120821
  2. MYOCET [Suspect]
     Indication: BREAST CANCER
     Dosage: 36.8MG WEEKLY
     Route: 042
     Dates: start: 20120809
  3. PACLITAXEL [Suspect]
     Indication: BREAST CANCER
     Dosage: 147MG WEEKLY
     Route: 042
     Dates: start: 20120809
  4. HERCEPTIN [Suspect]
     Indication: BREAST CANCER
     Dosage: 456MG EVERY 3 WEEKS
     Route: 042
     Dates: start: 20120809

REACTIONS (1)
  - Thrombosis [Not Recovered/Not Resolved]
